FAERS Safety Report 15558887 (Version 6)
Quarter: 2025Q2

REPORT INFORMATION
  Report Type: Report from Study
  Country: DE (occurrence: DE)
  Receive Date: 20181029
  Receipt Date: 20250424
  Transmission Date: 20250717
  Serious: Yes (Hospitalization)
  Sender: ROCHE
  Company Number: DE-ROCHE-2204638

PATIENT
  Age: 51 Year
  Sex: Female
  Weight: 90.0 kg

DRUGS (21)
  1. OCRELIZUMAB [Suspect]
     Active Substance: OCRELIZUMAB
     Indication: Primary progressive multiple sclerosis
     Route: 042
     Dates: start: 20180613, end: 20180627
  2. LEVOTHYROXINE SODIUM [Concomitant]
     Active Substance: LEVOTHYROXINE SODIUM
     Indication: Hyperthyroidism
     Route: 048
  3. CHOLECALCIFEROL [Concomitant]
     Active Substance: CHOLECALCIFEROL
     Indication: Vitamin D deficiency
     Route: 048
     Dates: start: 2002
  4. DALFAMPRIDINE [Concomitant]
     Active Substance: DALFAMPRIDINE
     Dosage: INDICATION: IMPROVEMENT OF WALKING DISTANCE
     Route: 048
     Dates: start: 20140715
  5. DALFAMPRIDINE [Concomitant]
     Active Substance: DALFAMPRIDINE
     Dosage: INDICATION: IMPROVEMENT OF WALKING DISTANCE
     Route: 048
  6. VALSARTAN [Concomitant]
     Active Substance: VALSARTAN
     Indication: Hypertension
     Route: 048
     Dates: start: 20180614
  7. OMEPRAZOLE [Concomitant]
     Active Substance: OMEPRAZOLE
     Route: 048
     Dates: start: 20151217
  8. RANITIDINE HYDROCHLORIDE [Concomitant]
     Active Substance: RANITIDINE HYDROCHLORIDE
     Indication: Prophylaxis
     Route: 048
     Dates: start: 20180612, end: 20180614
  9. RANITIDINE HYDROCHLORIDE [Concomitant]
     Active Substance: RANITIDINE HYDROCHLORIDE
     Route: 048
     Dates: start: 20180626, end: 20180628
  10. EBASTINE [Concomitant]
     Active Substance: EBASTINE
     Indication: Prophylaxis
     Route: 048
     Dates: start: 20180612, end: 20180614
  11. PREDNISOLONE [Concomitant]
     Active Substance: PREDNISOLONE
     Indication: Prophylaxis
     Route: 042
     Dates: start: 20180613, end: 20180613
  12. PREDNISOLONE [Concomitant]
     Active Substance: PREDNISOLONE
     Indication: Prophylaxis
     Route: 042
     Dates: start: 20180627, end: 20180627
  13. SPASMEX (GERMANY) [Concomitant]
     Route: 048
     Dates: start: 20200610, end: 20210604
  14. TRAMADOL [Concomitant]
     Active Substance: TRAMADOL
     Indication: Back pain
     Route: 048
     Dates: start: 20181001
  15. IBUPROFEN [Concomitant]
     Active Substance: IBUPROFEN
     Indication: Pain
     Dosage: AS REQUIRED
     Route: 048
     Dates: start: 20151217
  16. GLIMEPIRIDE [Concomitant]
     Active Substance: GLIMEPIRIDE
     Route: 048
     Dates: start: 201908
  17. GLIMEPIRIDE [Concomitant]
     Active Substance: GLIMEPIRIDE
     Route: 048
  18. BACLOFEN [Concomitant]
     Active Substance: BACLOFEN
     Route: 048
  19. CANDESARTAN [Concomitant]
     Active Substance: CANDESARTAN
     Indication: Hypertension
     Route: 048
  20. GABAPENTIN [Concomitant]
     Active Substance: GABAPENTIN
     Indication: Pain
     Route: 048
     Dates: start: 202109, end: 202112
  21. DAPAGLIFLOZIN [Concomitant]
     Active Substance: DAPAGLIFLOZIN
     Indication: Blood glucose increased
     Route: 042
     Dates: start: 202412

REACTIONS (2)
  - Polyneuropathy [Not Recovered/Not Resolved]
  - Facial paralysis [Recovering/Resolving]

NARRATIVE: CASE EVENT DATE: 20181007
